FAERS Safety Report 6786045-5 (Version None)
Quarter: 2010Q2

REPORT INFORMATION
  Report Type: 
  Country: None (occurrence: None)
  Receive Date: 20100623
  Receipt Date: 20100609
  Transmission Date: 20101027
  Serious: Yes (Hospitalization, Other)
  Sender: FDA-Public Use
  Company Number: PHHY2010FR37997

PATIENT
  Age: 90 Year
  Sex: Male

DRUGS (7)
  1. LEPONEX [Suspect]
     Indication: HALLUCINATION, VISUAL
     Dosage: 12.5 MG DAILY
     Route: 048
     Dates: start: 20091119
  2. LEPONEX [Suspect]
     Dosage: 25 MG DAILY
     Dates: start: 20091119, end: 20100301
  3. EXELON [Concomitant]
     Dosage: 6 MG
     Route: 048
  4. DUPHALAC [Concomitant]
  5. CACIT VITAMINE D3 [Concomitant]
  6. TADENAN [Concomitant]
     Dosage: 50 MG
     Route: 048
  7. TAMSULOSIN HCL [Concomitant]
     Dosage: 0.4 MG
     Route: 048

REACTIONS (2)
  - AGRANULOCYTOSIS [None]
  - LUNG DISORDER [None]
